FAERS Safety Report 4640603-2 (Version None)
Quarter: 2005Q2

REPORT INFORMATION
  Report Type: 
  Country: None (occurrence: None)
  Receive Date: 20050419
  Receipt Date: 20050406
  Transmission Date: 20051028
  Serious: Yes (Other)
  Sender: FDA-Public Use
  Company Number: SP-2005-002137

PATIENT
  Age: 54 Year
  Sex: Female

DRUGS (1)
  1. ALTEIS [Suspect]
     Indication: ESSENTIAL HYPERTENSION
     Dosage: 20 MG QD PO
     Route: 048
     Dates: start: 20050315, end: 20050322

REACTIONS (2)
  - CHEST DISCOMFORT [None]
  - DYSPNOEA PAROXYSMAL NOCTURNAL [None]
